FAERS Safety Report 4451055-X (Version None)
Quarter: 2004Q3

REPORT INFORMATION
  Report Type: 
  Country: None (occurrence: None)
  Receive Date: 20040916
  Receipt Date: 20040623
  Transmission Date: 20050211
  Serious: Yes (Other)
  Sender: FDA-Public Use
  Company Number: JP-ROCHE-372049

PATIENT
  Age: 48 Year
  Sex: Male
  Weight: 65 kg

DRUGS (15)
  1. VESANOID [Suspect]
     Indication: ACUTE PROMYELOCYTIC LEUKAEMIA
     Route: 048
     Dates: start: 20040306, end: 20040315
  2. VESANOID [Suspect]
     Dosage: DOSE REDUCTION
     Route: 048
     Dates: start: 20040316, end: 20040406
  3. VESANOID [Suspect]
     Route: 048
     Dates: start: 20040407, end: 20040414
  4. BLOPRESS [Suspect]
     Indication: HYPERTENSION
     Route: 048
     Dates: start: 20040304, end: 20040317
  5. ALDOMET [Concomitant]
     Indication: HYPERTENSION
     Route: 048
     Dates: start: 20040304
  6. ADALAT [Concomitant]
     Indication: HYPERTENSION
     Route: 048
     Dates: start: 20040304
  7. FIRSTCIN [Concomitant]
     Indication: INFECTION
     Route: 041
     Dates: start: 20040304, end: 20040325
  8. TOBRACIN [Concomitant]
     Indication: INFECTION
     Route: 041
     Dates: start: 20040305, end: 20040312
  9. FOY [Concomitant]
     Route: 041
     Dates: start: 20040304, end: 20040315
  10. CYTARABINE [Concomitant]
     Indication: ACUTE PROMYELOCYTIC LEUKAEMIA
     Route: 041
     Dates: start: 20040309, end: 20040315
  11. DAUNOMYCIN [Concomitant]
     Indication: ACUTE PROMYELOCYTIC LEUKAEMIA
     Route: 041
     Dates: start: 20040309, end: 20040313
  12. ITRIZOLE [Concomitant]
     Indication: INFECTION
     Route: 048
     Dates: start: 20040323, end: 20040420
  13. VANCOMYCIN [Concomitant]
     Indication: INFECTION
     Route: 041
     Dates: start: 20040328, end: 20040330
  14. AZACTAM [Concomitant]
     Indication: INFECTION
     Route: 041
     Dates: start: 20040331, end: 20040410
  15. CLINDAMYCIN HCL [Concomitant]
     Indication: INFECTION
     Route: 041
     Dates: start: 20040331, end: 20040410

REACTIONS (1)
  - BLOOD POTASSIUM INCREASED [None]
